FAERS Safety Report 19673919 (Version 1)
Quarter: 2021Q3

REPORT INFORMATION
  Report Type: Spontaneous
  Country: US (occurrence: US)
  Receive Date: 20210809
  Receipt Date: 20210809
  Transmission Date: 20211014
  Serious: No
  Sender: FDA-Public Use
  Company Number: US-GLAXOSMITHKLINE-US2021165567

PATIENT
  Age: 49 Year
  Sex: Female

DRUGS (2)
  1. BENLYSTA [Suspect]
     Active Substance: BELIMUMAB
     Indication: SYSTEMIC LUPUS ERYTHEMATOSUS
     Dosage: 200 MG/ML, WE
     Route: 058
     Dates: start: 20210702
  2. BENLYSTA [Suspect]
     Active Substance: BELIMUMAB
     Dosage: UNK,
     Dates: start: 20210709

REACTIONS (6)
  - Pain in extremity [Unknown]
  - Drug ineffective [Unknown]
  - Hysterectomy [Unknown]
  - Product administered at inappropriate site [Unknown]
  - Condition aggravated [Unknown]
  - Inappropriate schedule of product administration [Unknown]

NARRATIVE: CASE EVENT DATE: 20210712
